FAERS Safety Report 4937386-5 (Version None)
Quarter: 2006Q1

REPORT INFORMATION
  Report Type: 
  Country: None (occurrence: None)
  Receive Date: 20060302
  Receipt Date: 20060214
  Transmission Date: 20060701
  Serious: Yes (Other)
  Sender: FDA-Public Use
  Company Number: NL200601004393

PATIENT
  Age: 42 Year
  Sex: Female
  Weight: 62 kg

DRUGS (1)
  1. STRATTERA [Suspect]
     Indication: ATTENTION DEFICIT/HYPERACTIVITY DISORDER
     Dosage: 40 MG, DAILY (1/D), ORAL
     Route: 048
     Dates: start: 20051116, end: 20051119

REACTIONS (4)
  - ABASIA [None]
  - DIZZINESS [None]
  - FALL [None]
  - SYNCOPE [None]
